FAERS Safety Report 9228687 (Version 2)
Quarter: 2013Q2

REPORT INFORMATION
  Report Type: Report from Study
  Country: TH (occurrence: TH)
  Receive Date: 20130412
  Receipt Date: 20130508
  Transmission Date: 20140414
  Serious: Yes (Other)
  Sender: FDA-Public Use
  Company Number: TH-PFIZER INC-2013109709

PATIENT
  Age: 60 Year
  Sex: Male

DRUGS (4)
  1. FLUOROURACIL [Suspect]
     Indication: CHOLANGIOCARCINOMA
     Dosage: 600 MG/M2, CYCLIC
  2. MITOMYCIN [Suspect]
     Indication: CHOLANGIOCARCINOMA
     Dosage: 7 MG/M2, 1X/DAY
  3. DECOSTRIOL [Suspect]
     Indication: CHOLANGIOCARCINOMA
     Dosage: 12 UG, AM AND PM, ON 3 CONSECUTIVE DAYS WEEKLY, FOR 4 CONSECUTIVE WEEKS
  4. LEUCOVORIN [Suspect]
     Indication: CHOLANGIOCARCINOMA
     Dosage: 200 MG/M2, CYCLIC, FOR 5 DAYS

REACTIONS (1)
  - Hypercalcaemia [Unknown]
